FAERS Safety Report 5407143-4 (Version None)
Quarter: 2007Q3

REPORT INFORMATION
  Report Type: 
  Country: None (occurrence: None)
  Receive Date: 20070803
  Receipt Date: 20070803
  Transmission Date: 20080115
  Serious: Yes (Hospitalization)
  Sender: FDA-Public Use
  Company Number: None

PATIENT
  Sex: Female
  Weight: 81.2 kg

DRUGS (3)
  1. CYTARABINE [Suspect]
     Dosage: 1428 MG
  2. DAUNORUBICIN HCL [Suspect]
     Dosage: 366 MG
  3. CELEXA [Concomitant]

REACTIONS (13)
  - CERUMEN IMPACTION [None]
  - DEHYDRATION [None]
  - DIPLOPIA [None]
  - GAIT DISTURBANCE [None]
  - GAZE PALSY [None]
  - HALLUCINATION [None]
  - LUMBAR PUNCTURE ABNORMAL [None]
  - NAUSEA [None]
  - NUCLEAR MAGNETIC RESONANCE IMAGING BRAIN ABNORMAL [None]
  - NYSTAGMUS [None]
  - ORAL INTAKE REDUCED [None]
  - VERTIGO [None]
  - WEIGHT DECREASED [None]
